FAERS Safety Report 15260685 (Version 3)
Quarter: 2020Q3

REPORT INFORMATION
  Report Type: Report from Study
  Country: CA (occurrence: CA)
  Receive Date: 20180809
  Receipt Date: 20200805
  Transmission Date: 20201102
  Serious: Yes (Hospitalization, Other)
  Sender: FDA-Public Use
  Company Number: PHHY2018CA050673

PATIENT
  Age: 62 Year
  Sex: Female

DRUGS (4)
  1. APO?PAROXETINE [Concomitant]
     Active Substance: PAROXETINE
     Indication: PRODUCT USED FOR UNKNOWN INDICATION
     Dosage: UNK
     Route: 065
  2. SANDOSTATIN LAR DEPOT [Suspect]
     Active Substance: OCTREOTIDE ACETATE
     Indication: GASTRINOMA
     Dosage: 30 MG, QMO (EVERY 4 WEEKS)
     Route: 030
     Dates: start: 20110815
  3. SANDOSTATIN LAR DEPOT [Suspect]
     Active Substance: OCTREOTIDE ACETATE
  4. SANDOSTATIN LAR DEPOT [Suspect]
     Active Substance: OCTREOTIDE ACETATE

REACTIONS (27)
  - Constipation [Recovered/Resolved]
  - Rash pruritic [Unknown]
  - Mouth swelling [Unknown]
  - Chest discomfort [Unknown]
  - Vomiting [Unknown]
  - Diarrhoea [Unknown]
  - Influenza [Unknown]
  - Chills [Unknown]
  - Influenza [Recovered/Resolved]
  - Diabetes mellitus [Unknown]
  - Nephrolithiasis [Unknown]
  - Blood pressure increased [Unknown]
  - Sinus congestion [Recovering/Resolving]
  - Food poisoning [Unknown]
  - Malaise [Recovered/Resolved]
  - Anxiety [Recovered/Resolved]
  - Hypersensitivity [Unknown]
  - Pyrexia [Unknown]
  - Fall [Unknown]
  - Blood pressure systolic increased [Unknown]
  - Illness [Not Recovered/Not Resolved]
  - Ligament sprain [Unknown]
  - Contusion [Unknown]
  - Dyspnoea [Unknown]
  - Oral mucosal eruption [Unknown]
  - Pain [Recovering/Resolving]
  - Nausea [Unknown]

NARRATIVE: CASE EVENT DATE: 20180305
